FAERS Safety Report 24752519 (Version 1)
Quarter: 2024Q4

REPORT INFORMATION
  Report Type: Report from Study
  Country: IE (occurrence: IE)
  Receive Date: 20241219
  Receipt Date: 20241219
  Transmission Date: 20250114
  Serious: Yes (Hospitalization)
  Sender: AMGEN
  Company Number: IE-AMGEN-IRLSL2024247779

PATIENT
  Age: 38 Year
  Sex: Male

DRUGS (2)
  1. XGEVA [Suspect]
     Active Substance: DENOSUMAB
     Indication: Product used for unknown indication
     Dosage: UNK UNK, QMO
     Route: 058
     Dates: start: 2021
  2. XGEVA [Suspect]
     Active Substance: DENOSUMAB
     Dosage: 120 MILLIGRAM
     Route: 058
     Dates: start: 20241213

REACTIONS (3)
  - Cardiac ablation [Unknown]
  - Tooth disorder [Unknown]
  - Inappropriate schedule of product administration [Unknown]

NARRATIVE: CASE EVENT DATE: 20210101
